FAERS Safety Report 4530256-6 (Version None)
Quarter: 2004Q4

REPORT INFORMATION
  Report Type: 
  Country: None (occurrence: None)
  Receive Date: 20041215
  Receipt Date: 20041202
  Transmission Date: 20050328
  Serious: Yes (Hospitalization, Other)
  Sender: FDA-Public Use
  Company Number: 2004092921

PATIENT
  Sex: Female

DRUGS (1)
  1. ZITHROMAX [Suspect]
     Indication: ILL-DEFINED DISORDER
     Dates: start: 20041012

REACTIONS (6)
  - CARDIAC PACEMAKER MALFUNCTION [None]
  - CHOLECYSTECTOMY [None]
  - DYSPNOEA [None]
  - EYE SWELLING [None]
  - HEART RATE DECREASED [None]
  - SWELLING [None]
